FAERS Safety Report 15402334 (Version 1)
Quarter: 2018Q3

REPORT INFORMATION
  Report Type: Spontaneous
  Country: US (occurrence: US)
  Receive Date: 20180912
  Receipt Date: 20180912
  Transmission Date: 20181010
  Serious: Yes (Hospitalization)
  Sender: FDA-Public Use
  Company Number: None

PATIENT
  Age: 52 Year
  Sex: Male
  Weight: 122.47 kg

DRUGS (2)
  1. NICOTINE LOZENGE (2MG)/PLACEBO [Concomitant]
     Active Substance: NICOTINE
     Dosage: ?          OTHER FREQUENCY:6 PER 24 HRS ;?
     Route: 048
     Dates: start: 20180119, end: 20180309
  2. NICODERM CQ [Suspect]
     Active Substance: NICOTINE
     Indication: SMOKING CESSATION THERAPY
     Dosage: ?          OTHER FREQUENCY:EVERY 24 HR ;?
     Route: 062
     Dates: start: 20180126

REACTIONS (4)
  - Coronary artery occlusion [None]
  - Coronary artery disease [None]
  - Chest pain [None]
  - Condition aggravated [None]

NARRATIVE: CASE EVENT DATE: 20180321
